FAERS Safety Report 7509239-X (Version None)
Quarter: 2011Q2

REPORT INFORMATION
  Report Type: 
  Country: None (occurrence: None)
  Receive Date: 20110527
  Receipt Date: 20110524
  Transmission Date: 20111010
  Serious: Yes (Hospitalization)
  Sender: FDA-Public Use
  Company Number: ES-ROCHE-755177

PATIENT
  Age: 46 Year
  Sex: Male
  Weight: 35.4 kg

DRUGS (3)
  1. METHYLPREDNISOLONE [Concomitant]
     Indication: RHEUMATOID ARTHRITIS
  2. ACTEMRA [Suspect]
     Indication: RHEUMATOID ARTHRITIS
     Dosage: FIRST INFUSION, SECOND INFUSION: 15 NOVEMBER 2010, THIRD INFUSION: 13 DECEMBER 2010, FORM: INFUSION
     Route: 042
     Dates: start: 20101018, end: 20101213
  3. ARAVA [Concomitant]
     Indication: RHEUMATOID ARTHRITIS

REACTIONS (2)
  - PLEURAL EFFUSION [None]
  - TUBERCULOSIS [None]
